FAERS Safety Report 8943214 (Version 2)
Quarter: 2012Q4

REPORT INFORMATION
  Report Type: 
  Country: US (occurrence: US)
  Receive Date: 20121204
  Receipt Date: 20121227
  Transmission Date: 20130627
  Serious: Yes (Death, Life-Threatening, Hospitalization, Other)
  Sender: FDA-Public Use
  Company Number: US-009507513-1211USA012163

PATIENT
  Age: 59 Year
  Sex: Female

DRUGS (1)
  1. NOXAFIL [Suspect]
     Dosage: UNK
     Route: 048
     Dates: start: 201209

REACTIONS (1)
  - Respiratory disorder [Fatal]
